FAERS Safety Report 26008977 (Version 2)
Quarter: 2025Q4

REPORT INFORMATION
  Report Type: Spontaneous
  Country: NZ (occurrence: NZ)
  Receive Date: 20251106
  Receipt Date: 20251210
  Transmission Date: 20260117
  Serious: Yes (Other)
  Sender: CSL BEHRING
  Company Number: NZ-BEH-2025224324

PATIENT
  Age: 49 Year
  Sex: Female
  Weight: 68 kg

DRUGS (7)
  1. PRIVIGEN [Suspect]
     Active Substance: HUMAN IMMUNOGLOBULIN G
     Indication: Immunodeficiency common variable
     Dosage: 70 ML
     Route: 042
     Dates: start: 20251027, end: 20251027
  2. MEROPENEM [Concomitant]
     Active Substance: MEROPENEM
     Route: 042
  3. Tazocin [Concomitant]
     Route: 042
  4. VANCOMYCIN [Concomitant]
     Active Substance: VANCOMYCIN
     Route: 042
  5. VALACYCLOVIR HYDROCHLORIDE [Concomitant]
     Active Substance: VALACYCLOVIR HYDROCHLORIDE
  6. FLUCONAZOLE [Concomitant]
     Active Substance: FLUCONAZOLE
  7. METFORMIN [Concomitant]
     Active Substance: METFORMIN HYDROCHLORIDE

REACTIONS (10)
  - Oxygen saturation decreased [Recovered/Resolved]
  - Hypoxia [Unknown]
  - Heart rate increased [Recovered/Resolved]
  - Dyspnoea [Recovered/Resolved]
  - Pyrexia [Recovered/Resolved]
  - Feeling cold [Recovered/Resolved]
  - Use of accessory respiratory muscles [Recovered/Resolved]
  - Respiratory rate increased [Recovered/Resolved]
  - Respiratory disorder [Unknown]
  - Tachycardia [Unknown]

NARRATIVE: CASE EVENT DATE: 20251027
